FAERS Safety Report 5174604-5 (Version None)
Quarter: 2006Q4

REPORT INFORMATION
  Report Type: 
  Country: None (occurrence: None)
  Receive Date: 20061206
  Receipt Date: 20061124
  Transmission Date: 20070319
  Serious: Yes (Disabling)
  Sender: FDA-Public Use
  Company Number: GBWYE643024NOV06

PATIENT
  Sex: Female

DRUGS (1)
  1. EFFEXOR [Suspect]
     Dosage: 75 MG ORAL
     Route: 048

REACTIONS (2)
  - MOBILITY DECREASED [None]
  - MUSCLE RIGIDITY [None]
